FAERS Safety Report 23219645 (Version 3)
Quarter: 2024Q2

REPORT INFORMATION
  Report Type: Spontaneous
  Country: US (occurrence: US)
  Receive Date: 20231122
  Receipt Date: 20240528
  Transmission Date: 20240716
  Serious: Yes (Other)
  Sender: FDA-Public Use
  Company Number: US-AVADEL CNS PHARMACEUTICALS, LLC-2023AVA00226

PATIENT
  Age: 50 Year
  Sex: Female
  Weight: 122.9 kg

DRUGS (24)
  1. LUMRYZ [Suspect]
     Active Substance: SODIUM OXYBATE
     Indication: Narcolepsy
     Dosage: 4.5 MG, 1X/DAY NIGHTLY AT BEDTIME
     Route: 048
     Dates: start: 202309, end: 20231115
  2. LUMRYZ [Suspect]
     Active Substance: SODIUM OXYBATE
     Indication: Cataplexy
  3. LUMRYZ [Suspect]
     Active Substance: SODIUM OXYBATE
     Indication: Obstructive sleep apnoea syndrome
  4. LUMRYZ [Suspect]
     Active Substance: SODIUM OXYBATE
     Indication: Narcolepsy
     Dosage: 6 G, 1X/DAY NIGHTLY AT BEDTIME
     Route: 048
     Dates: start: 20231116
  5. LUMRYZ [Suspect]
     Active Substance: SODIUM OXYBATE
     Indication: Cataplexy
  6. LUMRYZ [Suspect]
     Active Substance: SODIUM OXYBATE
     Indication: Obstructive sleep apnoea syndrome
  7. ADDERALL [Suspect]
     Active Substance: AMPHETAMINE ASPARTATE\AMPHETAMINE SULFATE\DEXTROAMPHETAMINE SACCHARATE\DEXTROAMPHETAMINE SULFATE
     Dosage: UNK
  8. LASIX [Concomitant]
     Active Substance: FUROSEMIDE
     Dosage: 40 MG, 1X/DAY
  9. WAKIX [Concomitant]
     Active Substance: PITOLISANT HYDROCHLORIDE
     Dosage: 17.8 MG, 2X/DAY
  10. NURTEC ODT [Concomitant]
     Active Substance: RIMEGEPANT SULFATE
     Dosage: UNK
  11. FUROSEMIDE [Concomitant]
     Active Substance: FUROSEMIDE
     Dosage: UNK
  12. BREO ELLIPTA [Concomitant]
     Active Substance: FLUTICASONE FUROATE\VILANTEROL TRIFENATATE
     Dosage: 200-25 MCG
  13. ALBUTEROL SULFATE [Concomitant]
     Active Substance: ALBUTEROL SULFATE
  14. CYMBALTA [Concomitant]
     Active Substance: DULOXETINE HYDROCHLORIDE
  15. PROBIOTIC FORMULA 1B [Concomitant]
     Dosage: UNK
  16. NITROGLYCERIN [Concomitant]
     Active Substance: NITROGLYCERIN
  17. BIOTIN [Concomitant]
     Active Substance: BIOTIN
  18. PROGESTERONE [Concomitant]
     Active Substance: PROGESTERONE
  19. ADVIL [Concomitant]
     Active Substance: IBUPROFEN
  20. ALEVE [Concomitant]
     Active Substance: NAPROXEN SODIUM
  21. TYLENOL [Concomitant]
     Active Substance: ACETAMINOPHEN
  22. POTASSIUM CHLORIDE [Concomitant]
     Active Substance: POTASSIUM CHLORIDE
  23. ZEPBOUND [Concomitant]
     Active Substance: TIRZEPATIDE
  24. ALBUTEROL SULFATE [Concomitant]
     Active Substance: ALBUTEROL SULFATE

REACTIONS (13)
  - Hallucination [Unknown]
  - Musculoskeletal chest pain [Not Recovered/Not Resolved]
  - Back pain [Recovering/Resolving]
  - Middle insomnia [Unknown]
  - Chest pain [Recovering/Resolving]
  - Weight increased [Not Recovered/Not Resolved]
  - Middle insomnia [Unknown]
  - Feeling jittery [Unknown]
  - Peripheral swelling [Not Recovered/Not Resolved]
  - Fluid retention [Unknown]
  - Drug ineffective [Unknown]
  - Panic attack [Not Recovered/Not Resolved]
  - Unevaluable event [Unknown]

NARRATIVE: CASE EVENT DATE: 20230901
